FAERS Safety Report 5323817-8 (Version None)
Quarter: 2007Q2

REPORT INFORMATION
  Report Type: 
  Country: None (occurrence: None)
  Receive Date: 20070514
  Receipt Date: 20070503
  Transmission Date: 20071010
  Serious: Yes (Death)
  Sender: FDA-Public Use
  Company Number: B0467250A

PATIENT
  Age: 2 Month
  Sex: Male

DRUGS (5)
  1. ZIDOVUDINE [Suspect]
     Indication: HIV INFECTION
     Dosage: 60MG TWICE PER DAY
     Route: 048
     Dates: start: 20070219, end: 20070305
  2. LAMIVUDINE [Suspect]
     Indication: HIV INFECTION
     Dosage: 30MG PER DAY
     Route: 048
     Dates: start: 20070219, end: 20070305
  3. KALETRA [Suspect]
     Indication: HIV INFECTION
     Dosage: 1ML TWICE PER DAY
     Route: 048
     Dates: start: 20070219, end: 20070305
  4. COTRIMOXAZOLE [Concomitant]
  5. PREVNAR [Concomitant]

REACTIONS (4)
  - ANAEMIA [None]
  - DIARRHOEA [None]
  - GASTROENTERITIS [None]
  - VOMITING [None]
